FAERS Safety Report 7170233-2 (Version None)
Quarter: 2010Q4

REPORT INFORMATION
  Report Type: 
  Country: None (occurrence: None)
  Receive Date: 20101203
  Receipt Date: 20101118
  Transmission Date: 20110411
  Serious: Yes (Hospitalization, Congenital Anomaly, Other)
  Sender: FDA-Public Use
  Company Number: AUR-APL-2010-02206

PATIENT
  Age: 3 Month
  Sex: Male

DRUGS (7)
  1. SERTRALINE [Suspect]
     Dosage: TRANSPLACENTAL
     Route: 064
  2. LAMICTAL [Suspect]
     Indication: EPILEPSY
     Dosage: 400MG - BID - TRANSPLACENTA/DURING GESTATION
     Route: 064
  3. PROPRANOLOL [Suspect]
     Dosage: TRANSPLACENTAL
     Route: 064
  4. ARIPIPRAZOLE [Suspect]
     Dosage: TRANSPLACENTAL
     Route: 064
  5. DIHYDROCODEINE BITARTRATE INJ [Suspect]
     Dosage: TRANSPLACENTAL
     Route: 064
  6. LANSOPRAZOLE [Suspect]
     Dosage: TRANSPLACENTAL
     Route: 064
  7. NORETHISTERONE [Suspect]
     Dosage: TRANSPLACENTAL
     Route: 064

REACTIONS (4)
  - ATRIAL SEPTAL DEFECT [None]
  - MATERNAL DRUGS AFFECTING FOETUS [None]
  - PREMATURE BABY [None]
  - VENTRICULAR SEPTAL DEFECT [None]
